FAERS Safety Report 21538384 (Version 1)
Quarter: 2022Q4

REPORT INFORMATION
  Report Type: Report from Study
  Country: US (occurrence: US)
  Receive Date: 20221102
  Receipt Date: 20221102
  Transmission Date: 20230113
  Serious: No
  Sender: FDA-Public Use
  Company Number: US-BIOVITRUM-2022US08555

PATIENT
  Sex: Female

DRUGS (2)
  1. DOPTELET [Suspect]
     Active Substance: AVATROMBOPAG MALEATE
     Indication: Immune thrombocytopenia
     Dates: start: 20220615
  2. DOPTELET [Suspect]
     Active Substance: AVATROMBOPAG MALEATE
     Dates: start: 20220615

REACTIONS (10)
  - Liver function test abnormal [Unknown]
  - Full blood count decreased [Unknown]
  - Skin laceration [Unknown]
  - Haemorrhage [Unknown]
  - Platelet count increased [Unknown]
  - Contusion [Unknown]
  - Petechiae [Unknown]
  - Headache [Recovering/Resolving]
  - Coagulopathy [Unknown]
  - Drug ineffective [Unknown]
